FAERS Safety Report 14992507 (Version 1)
Quarter: 2018Q2

REPORT INFORMATION
  Report Type: Spontaneous
  Country: DE (occurrence: DE)
  Receive Date: 20180609
  Receipt Date: 20180609
  Transmission Date: 20180711
  Serious: Yes (Hospitalization)
  Sender: FDA-Public Use
  Company Number: DE-TEVA-2018-DE-903592

PATIENT
  Age: 79 Year
  Sex: Female
  Weight: 55 kg

DRUGS (9)
  1. FOLINIC ACID [Suspect]
     Active Substance: LEUCOVORIN
     Dosage: 200 MG / M?, SOLUTION FOR INJECTION / INFUSION
     Route: 042
  2. PANTOPRAZOL [Concomitant]
     Active Substance: PANTOPRAZOLE SODIUM
     Dosage: 40 MG, 1-0-0-0, TABLET
     Route: 048
  3. BEVACIZUMAB. [Suspect]
     Active Substance: BEVACIZUMAB
     Dosage: 5 MG / M?, SOLUTION FOR INJECTION / INFUSION
     Route: 042
  4. METAMIZOL [Concomitant]
     Active Substance: METAMIZOLE SODIUM
     Dosage: 500 MG, NEED, TABLETS
     Route: 048
  5. METOPROLOL. [Concomitant]
     Active Substance: METOPROLOL
     Dosage: 50 MG, 1-0-1-0, TABLET
     Route: 048
  6. FUROSEMID [Concomitant]
     Active Substance: FUROSEMIDE
     Dosage: 20 MG, 1-0-0-0, TABLET
     Route: 048
  7. RIVAROXABAN [Concomitant]
     Active Substance: RIVAROXABAN
     Dosage: 20 MG, 1-0-0-0, TABLET
     Route: 048
  8. OXALIPLATIN. [Suspect]
     Active Substance: OXALIPLATIN
     Dosage: 50 MG / M?, SOLUTION FOR INJECTION / INFUSION
     Route: 042
  9. FLUOROURACIL. [Suspect]
     Active Substance: FLUOROURACIL
     Dosage: 2400 MG / M?, SOLUTION FOR INJECTION / INFUSION
     Route: 042

REACTIONS (3)
  - General physical health deterioration [Unknown]
  - Pain [Unknown]
  - Rash [Unknown]
